FAERS Safety Report 22593069 (Version 1)
Quarter: 2023Q2

REPORT INFORMATION
  Report Type: Report from Study
  Country: US (occurrence: US)
  Receive Date: 20230613
  Receipt Date: 20230613
  Transmission Date: 20230721
  Serious: Yes (Other)
  Sender: FDA-Public Use
  Company Number: US-002147023-NVSC2023US130576

PATIENT
  Age: 59 Year
  Sex: Female

DRUGS (2)
  1. LEQVIO [Interacting]
     Active Substance: INCLISIRAN SODIUM
     Indication: Product used for unknown indication
     Dosage: 1.5 ML, OTHER (ONCE EVERY 6 MONTHS)
     Route: 042
     Dates: start: 20230321
  2. LEQVIO [Interacting]
     Active Substance: INCLISIRAN SODIUM
     Dosage: 284 MG, OTHER (EVERY 6 MONTHS INJECTION)
     Route: 042
     Dates: start: 20230321, end: 20230606

REACTIONS (4)
  - Liver injury [Not Recovered/Not Resolved]
  - Gamma-glutamyltransferase increased [Unknown]
  - Blood alkaline phosphatase increased [Unknown]
  - Low density lipoprotein increased [Unknown]

NARRATIVE: CASE EVENT DATE: 20230321
